FAERS Safety Report 11927767 (Version 1)
Quarter: 2016Q1

REPORT INFORMATION
  Report Type: Spontaneous
  Country: US (occurrence: US)
  Receive Date: 20160119
  Receipt Date: 20160119
  Transmission Date: 20160526
  Serious: No
  Sender: FDA-Public Use
  Company Number: US-TAKEDA-2016TUS000889

PATIENT
  Age: 63 Year
  Sex: Male
  Weight: 68.27 kg

DRUGS (8)
  1. TERAZOSIN [Concomitant]
     Active Substance: TERAZOSIN\TERAZOSIN HYDROCHLORIDE
     Indication: PROPHYLAXIS
     Dosage: UNK
  2. FINASTERIDE. [Concomitant]
     Active Substance: FINASTERIDE
     Indication: PROPHYLAXIS
     Dosage: 60 MG, QD
     Route: 048
  3. CLORAZEPATE [Concomitant]
     Active Substance: CLORAZEPATE DIPOTASSIUM
     Indication: SLEEP DISORDER
  4. XIFAXAN [Concomitant]
     Active Substance: RIFAXIMIN
     Indication: SMALL INTESTINAL BACTERIAL OVERGROWTH
     Dosage: UNK, 2/WEEK
  5. NEOMYCIN [Concomitant]
     Active Substance: NEOMYCIN
     Indication: SMALL INTESTINAL BACTERIAL OVERGROWTH
     Dosage: UNK, 2/WEEK
  6. ERYTHROMYCIN. [Concomitant]
     Active Substance: ERYTHROMYCIN
     Indication: SMALL INTESTINAL BACTERIAL OVERGROWTH
     Dosage: 250 MG, 2/WEEK
  7. DEXILANT [Suspect]
     Active Substance: DEXLANSOPRAZOLE
     Indication: GASTROOESOPHAGEAL REFLUX DISEASE
     Dosage: 60 MG, QD
     Route: 048
  8. CLORAZEPATE [Concomitant]
     Active Substance: CLORAZEPATE DIPOTASSIUM
     Indication: TENSION
     Dosage: 7.5 MG, TID
     Route: 048

REACTIONS (3)
  - Small intestinal bacterial overgrowth [Recovered/Resolved]
  - Drug ineffective [Recovered/Resolved]
  - Condition aggravated [Recovered/Resolved]

NARRATIVE: CASE EVENT DATE: 201512
